FAERS Safety Report 12960155 (Version 1)
Quarter: 2016Q4

REPORT INFORMATION
  Report Type: Spontaneous
  Country: US (occurrence: US)
  Receive Date: 20161121
  Receipt Date: 20161121
  Transmission Date: 20170207
  Serious: Yes (Life-Threatening, Hospitalization, Other)
  Sender: FDA-Public Use
  Company Number: US-TEVA-713616USA

PATIENT
  Age: 20 Year
  Sex: Male

DRUGS (3)
  1. ISOPRENALINE [Concomitant]
     Active Substance: ISOPROTERENOL HYDROCHLORIDE
     Route: 041
  2. LOPERAMIDE [Suspect]
     Active Substance: LOPERAMIDE
     Indication: DRUG ABUSE
     Dosage: UP TO 288 MG LOPERAMIDE DAILY (2 BOTTLES OF 2MG TABLETS)
     Route: 048
  3. METOPROLOL SUCCINATE. [Concomitant]
     Active Substance: METOPROLOL SUCCINATE
     Route: 065

REACTIONS (7)
  - Ventricular arrhythmia [Recovered/Resolved]
  - Syncope [Unknown]
  - Drug abuse [Recovered/Resolved]
  - Drug withdrawal syndrome [Recovered/Resolved]
  - Electrocardiogram abnormal [Recovered/Resolved]
  - Cardiomyopathy [Recovered/Resolved]
  - Intentional overdose [Recovered/Resolved]
